FAERS Safety Report 5139368-X (Version None)
Quarter: 2006Q4

REPORT INFORMATION
  Report Type: 
  Country: None (occurrence: None)
  Receive Date: 20061024
  Receipt Date: 20061016
  Transmission Date: 20070319
  Serious: Yes (Other)
  Sender: FDA-Public Use
  Company Number: TPA2006A01500

PATIENT
  Age: 50 Year
  Sex: Female
  Weight: 67.4 kg

DRUGS (5)
  1. PIOGLITAZONE HCL [Suspect]
     Indication: GLUCOSE TOLERANCE IMPAIRED
     Dosage: UNK, 1 IN 1 D; PER ORAL; UNK., 1 IN 1 D, PER ORAL
     Route: 048
     Dates: start: 20051117, end: 20060413
  2. PIOGLITAZONE HCL [Suspect]
     Indication: GLUCOSE TOLERANCE IMPAIRED
     Dosage: UNK, 1 IN 1 D; PER ORAL; UNK., 1 IN 1 D, PER ORAL
     Route: 048
     Dates: start: 20060721
  3. ASPIRIN [Concomitant]
  4. ATENOLOL [Concomitant]
  5. PREVACID [Concomitant]

REACTIONS (6)
  - CHEST DISCOMFORT [None]
  - CHEST PAIN [None]
  - CORONARY ARTERY DISEASE [None]
  - DIZZINESS [None]
  - MITRAL VALVE PROLAPSE [None]
  - OEDEMA PERIPHERAL [None]
